FAERS Safety Report 13334921 (Version 3)
Quarter: 2018Q1

REPORT INFORMATION
  Report Type: Spontaneous
  Country: US (occurrence: US)
  Receive Date: 20170314
  Receipt Date: 20180102
  Transmission Date: 20180508
  Serious: Yes (Other)
  Sender: FDA-Public Use
  Company Number: US-PFIZER INC-2017104043

PATIENT
  Age: 79 Year
  Sex: Female

DRUGS (1)
  1. GABAPENTIN. [Suspect]
     Active Substance: GABAPENTIN
     Dosage: 1200 MG, DAILY

REACTIONS (4)
  - Asthenia [Unknown]
  - Toxicity to various agents [Unknown]
  - Dizziness [Unknown]
  - Fall [Unknown]
